FAERS Safety Report 11642525 (Version 1)
Quarter: 2015Q4

REPORT INFORMATION
  Report Type: Spontaneous
  Country: CA (occurrence: CA)
  Receive Date: 20151019
  Receipt Date: 20151019
  Transmission Date: 20160304
  Serious: Yes (Death, Other)
  Sender: FDA-Public Use
  Company Number: CA-HOSPIRA-3038029

PATIENT
  Sex: Male

DRUGS (1)
  1. MORPHINE SULPHATE [Suspect]
     Active Substance: MORPHINE SULFATE
     Indication: TUMOUR PAIN
     Route: 065

REACTIONS (4)
  - Overdose [Fatal]
  - Drug ineffective [Fatal]
  - Coma [Fatal]
  - Euthanasia [Fatal]
